FAERS Safety Report 6337156-X (Version None)
Quarter: 2009Q3

REPORT INFORMATION
  Report Type: 
  Country: None (occurrence: None)
  Receive Date: 20090831
  Receipt Date: 20090827
  Transmission Date: 20100115
  Serious: Yes (Hospitalization, Other)
  Sender: FDA-Public Use
  Company Number: 2009SP012714

PATIENT
  Age: 64 Year
  Sex: Female
  Weight: 74 kg

DRUGS (4)
  1. VIRAFERONPEG [Suspect]
     Indication: HEPATITIS C
     Dosage: 120 MCG; QW; SC
     Route: 058
     Dates: start: 20080801, end: 20090701
  2. REBETOL [Suspect]
     Indication: HEPATITIS C
     Dosage: 1000 MG; QD; PO, 600 MG; QD; PO
     Route: 048
     Dates: end: 20090701
  3. REBETOL [Suspect]
     Indication: HEPATITIS C
     Dosage: 1000 MG; QD; PO, 600 MG; QD; PO
     Route: 048
     Dates: start: 20080801
  4. ACETAMINOPHEN [Concomitant]

REACTIONS (3)
  - DYSARTHRIA [None]
  - DYSPNOEA [None]
  - HAEMOGLOBIN DECREASED [None]
